FAERS Safety Report 4409682-1 (Version None)
Quarter: 2004Q3

REPORT INFORMATION
  Report Type: 
  Country: None (occurrence: None)
  Receive Date: 20040727
  Receipt Date: 20040727
  Transmission Date: 20050211
  Serious: Yes (Hospitalization)
  Sender: FDA-Public Use
  Company Number: None

PATIENT
  Age: 44 Year
  Sex: Male
  Weight: 80 kg

DRUGS (3)
  1. PHYTONADIONE [Suspect]
     Indication: ANAEMIA
     Dosage: 15 MG ONCE INTRAVENOUS
     Route: 042
     Dates: start: 20030805, end: 20030805
  2. PHYTONADIONE [Suspect]
     Indication: JAUNDICE
     Dosage: 15 MG ONCE INTRAVENOUS
     Route: 042
     Dates: start: 20030805, end: 20030805
  3. PHYTONADIONE [Suspect]
     Indication: THROMBOCYTOPENIA
     Dosage: 15 MG ONCE INTRAVENOUS
     Route: 042
     Dates: start: 20030805, end: 20030805

REACTIONS (3)
  - CHILLS [None]
  - TONGUE BITING [None]
  - WOUND HAEMORRHAGE [None]
